FAERS Safety Report 7251677-7 (Version None)
Quarter: 2011Q1

REPORT INFORMATION
  Report Type: 
  Country: None (occurrence: None)
  Receive Date: 20110128
  Receipt Date: 20110121
  Transmission Date: 20110831
  Serious: Yes (Hospitalization)
  Sender: FDA-Public Use
  Company Number: US-US-EMD SERONO, INC.-230318J10USA

PATIENT
  Sex: Female

DRUGS (3)
  1. IBUPROFEN [Concomitant]
     Indication: PREMEDICATION
     Route: 065
  2. REBIF [Suspect]
     Indication: MULTIPLE SCLEROSIS
     Route: 058
     Dates: start: 20091016, end: 20100901
  3. REBIF [Suspect]
     Route: 058
     Dates: end: 20110103

REACTIONS (10)
  - MULTIPLE SCLEROSIS RELAPSE [None]
  - MUSCULAR WEAKNESS [None]
  - HYPOAESTHESIA [None]
  - PYREXIA [None]
  - HEART RATE INCREASED [None]
  - PRODUCTIVE COUGH [None]
  - DYSPNOEA [None]
  - URINARY INCONTINENCE [None]
  - ASTHENIA [None]
  - PAIN IN EXTREMITY [None]
